FAERS Safety Report 15648071 (Version 1)
Quarter: 2018Q4

REPORT INFORMATION
  Report Type: Spontaneous
  Country: US (occurrence: US)
  Receive Date: 20181122
  Receipt Date: 20181122
  Transmission Date: 20190205
  Serious: No
  Sender: FDA-Public Use
  Company Number: US-HORIZON-PRE-0519-2018

PATIENT
  Age: 61 Year
  Sex: Female

DRUGS (2)
  1. RAYOS [Suspect]
     Active Substance: PREDNISONE
     Indication: PSORIATIC ARTHROPATHY
     Dosage: 5 MG TABLET BID
     Dates: start: 20181017
  2. METHOTREXATE. [Concomitant]
     Active Substance: METHOTREXATE

REACTIONS (3)
  - Product container issue [Unknown]
  - Drug effect decreased [Unknown]
  - Therapy change [Unknown]

NARRATIVE: CASE EVENT DATE: 20181017
